FAERS Safety Report 7437709-1 (Version None)
Quarter: 2011Q2

REPORT INFORMATION
  Report Type: 
  Country: None (occurrence: None)
  Receive Date: 20110426
  Receipt Date: 20110420
  Transmission Date: 20111010
  Serious: Yes (Other)
  Sender: FDA-Public Use
  Company Number: BR-ROCHE-772382

PATIENT
  Sex: Female
  Weight: 65 kg

DRUGS (3)
  1. XENICAL [Suspect]
     Route: 048
     Dates: start: 20010101, end: 20010101
  2. XENICAL [Suspect]
     Route: 048
     Dates: start: 20110417
  3. LOSARTAN POTASSIUM [Concomitant]
     Indication: HYPERTENSION

REACTIONS (4)
  - MUSCULOSKELETAL DISORDER [None]
  - DIARRHOEA [None]
  - STEATORRHOEA [None]
  - OVARIAN CYST [None]
